FAERS Safety Report 6030910-3 (Version None)
Quarter: 2009Q1

REPORT INFORMATION
  Report Type: 
  Country: None (occurrence: None)
  Receive Date: 20090106
  Receipt Date: 20081222
  Transmission Date: 20090719
  Serious: Yes (Death)
  Sender: FDA-Public Use
  Company Number: KV200801375

PATIENT
  Age: 82 Year
  Sex: Male
  Weight: 58.5 kg

DRUGS (4)
  1. ISOSORBIDE MONONITRATE [Suspect]
     Indication: CARDIAC OPERATION
     Dosage: ORAL
     Route: 048
     Dates: end: 20081101
  2. UNSPECIFIED MEDICATIONS [Concomitant]
  3. LIPITOR [Concomitant]
  4. ANTIHYPERTENSIVES [Concomitant]

REACTIONS (5)
  - ANOREXIA [None]
  - DEMENTIA ALZHEIMER'S TYPE [None]
  - DISORIENTATION [None]
  - PRODUCT QUALITY ISSUE [None]
  - WEIGHT DECREASED [None]
